FAERS Safety Report 19041204 (Version 1)
Quarter: 2021Q1

REPORT INFORMATION
  Report Type: Spontaneous
  Country: FR (occurrence: US)
  Receive Date: 20210323
  Receipt Date: 20210323
  Transmission Date: 20210420
  Serious: Yes (Death, Other)
  Sender: FDA-Public Use
  Company Number: FR-SUN PHARMACEUTICAL INDUSTRIES LTD-2021R1-286959

PATIENT
  Age: 15 Year
  Sex: Male

DRUGS (6)
  1. IBUPROFEN. [Suspect]
     Active Substance: IBUPROFEN
     Indication: MUSCLE SPASTICITY
     Dosage: UNK
     Route: 065
  2. OXYBUTININ [Suspect]
     Active Substance: OXYBUTYNIN
     Indication: MUSCLE SPASTICITY
     Dosage: UNK
     Route: 065
  3. NITROUS OXIDE. [Suspect]
     Active Substance: NITROUS OXIDE
     Indication: MUSCLE SPASTICITY
     Dosage: UNK
     Route: 065
  4. BOTOX [Suspect]
     Active Substance: ONABOTULINUMTOXINA
     Indication: MUSCLE SPASTICITY
     Dosage: UNK
     Route: 065
  5. TOLTERODIN [Suspect]
     Active Substance: TOLTERODINE TARTRATE
  6. SEVOFLURANE. [Suspect]
     Active Substance: SEVOFLURANE
     Indication: MUSCLE SPASTICITY
     Dosage: UNK
     Route: 065

REACTIONS (3)
  - Cerebral artery embolism [Fatal]
  - Aspiration [Fatal]
  - Deep vein thrombosis [Fatal]
